FAERS Safety Report 9183759 (Version 1)
Quarter: 2013Q1

REPORT INFORMATION
  Report Type: Spontaneous
  Country: US (occurrence: US)
  Receive Date: 20130322
  Receipt Date: 20130322
  Transmission Date: 20140127
  Serious: No
  Sender: FDA-Public Use
  Company Number: US-BRISTOL-MYERS SQUIBB COMPANY-16601114

PATIENT
  Age: 56 Year
  Sex: Male
  Weight: 72.56 kg

DRUGS (2)
  1. ERBITUX [Suspect]
     Indication: COLON CANCER
     Dosage: 100 TREATMENTS
  2. ERBITUX [Suspect]
     Indication: HEPATIC CANCER
     Dosage: 100 TREATMENTS

REACTIONS (4)
  - Hair growth abnormal [Unknown]
  - Dry skin [Unknown]
  - Nail disorder [Unknown]
  - Extrasystoles [Unknown]
